FAERS Safety Report 9905341 (Version 1)
Quarter: 2014Q1

REPORT INFORMATION
  Report Type: Spontaneous
  Country: US (occurrence: None)
  Receive Date: 20140218
  Receipt Date: 20140218
  Transmission Date: 20141002
  Serious: Yes (Other)
  Sender: FDA-Public Use
  Company Number: None

PATIENT
  Age: 53 Year
  Sex: Female
  Weight: 54.43 kg

DRUGS (1)
  1. TESTOSTERONE [Suspect]
     Indication: HORMONE LEVEL ABNORMAL
     Route: 061
     Dates: start: 20131118, end: 20140202

REACTIONS (3)
  - Carpal tunnel syndrome [None]
  - Hypoaesthesia [None]
  - Paraesthesia [None]
